FAERS Safety Report 5867739-2 (Version None)
Quarter: 2008Q3

REPORT INFORMATION
  Report Type: 
  Country: None (occurrence: None)
  Receive Date: 20080902
  Receipt Date: 20080304
  Transmission Date: 20090109
  Serious: No
  Sender: FDA-Public Use
  Company Number: US-ABBOTT-08P-163-0440840-00

PATIENT
  Sex: Female
  Weight: 102.3 kg

DRUGS (3)
  1. DEPAKOTE ER [Suspect]
     Indication: BIPOLAR DISORDER
     Route: 048
     Dates: start: 20070301
  2. GABAPENTIN [Suspect]
     Indication: BACK PAIN
     Route: 048
  3. GABAPENTIN [Suspect]
     Indication: PAIN IN EXTREMITY

REACTIONS (4)
  - BACK PAIN [None]
  - DEPRESSION [None]
  - PAIN IN EXTREMITY [None]
  - WEIGHT INCREASED [None]
